FAERS Safety Report 5449257-9 (Version None)
Quarter: 2007Q3

REPORT INFORMATION
  Report Type: 
  Country: None (occurrence: None)
  Receive Date: 20070911
  Receipt Date: 20070830
  Transmission Date: 20080115
  Serious: Yes (Other)
  Sender: FDA-Public Use
  Company Number: CA-SHR-CA-2007-023880

PATIENT
  Age: 58 Year
  Sex: Female

DRUGS (3)
  1. BETASERON [Suspect]
     Indication: SECONDARY PROGRESSIVE MULTIPLE SCLEROSIS
     Dosage: 4 MIU, EVERY 2D
     Route: 058
     Dates: start: 20070626
  2. BETASERON [Suspect]
     Dosage: 8 MIU, EVERY 2D
     Route: 058
     Dates: start: 20070101
  3. ADVIL LIQUI-GELS [Concomitant]

REACTIONS (7)
  - GAIT DISTURBANCE [None]
  - HYPOAESTHESIA [None]
  - JOINT RANGE OF MOTION DECREASED [None]
  - MOBILITY DECREASED [None]
  - MUSCULAR WEAKNESS [None]
  - MUSCULOSKELETAL STIFFNESS [None]
  - SENSATION OF HEAVINESS [None]
